FAERS Safety Report 25787127 (Version 2)
Quarter: 2025Q3

REPORT INFORMATION
  Report Type: Spontaneous
  Country: EU (occurrence: EU)
  Receive Date: 20250910
  Receipt Date: 20250912
  Transmission Date: 20251020
  Serious: Yes (Other)
  Sender: ABBVIE
  Company Number: EU-PFIZER INC-PV202500107129

PATIENT
  Sex: Male

DRUGS (3)
  1. AVIBACTAM\AZTREONAM [Suspect]
     Active Substance: AVIBACTAM\AZTREONAM
     Indication: Product used for unknown indication
     Dosage: 1.5 G, 2 TIMES PER DAY (EVERY 12 HOURS); INJECTION
     Route: 042
     Dates: start: 20250827, end: 20250828
  2. AVIBACTAM\AZTREONAM [Suspect]
     Active Substance: AVIBACTAM\AZTREONAM
     Indication: Product used for unknown indication
     Dosage: 1.5 G, 4 TIMES PER DAY (EVERY 6 HOURS); INJECTION
     Route: 042
     Dates: start: 20250828
  3. AVIBACTAM\AZTREONAM [Suspect]
     Active Substance: AVIBACTAM\AZTREONAM
     Indication: Product used for unknown indication
     Dosage: 1.5 G, 2X/DAY (EVERY 12 HOURS)
     Dates: start: 20250904

REACTIONS (5)
  - Sepsis [Unknown]
  - Haemodynamic instability [Unknown]
  - Condition aggravated [Unknown]
  - Drug level increased [Unknown]
  - Overdose [Unknown]

NARRATIVE: CASE EVENT DATE: 20250828
